FAERS Safety Report 9344830 (Version 1)
Quarter: 2013Q2

REPORT INFORMATION
  Report Type: Spontaneous
  Country: US (occurrence: US)
  Receive Date: 20130612
  Receipt Date: 20130612
  Transmission Date: 20140414
  Serious: Yes (Death)
  Sender: FDA-Public Use
  Company Number: US-GLAXOSMITHKLINE-A1026448A

PATIENT
  Age: 56 Year
  Sex: Male

DRUGS (3)
  1. VOTRIENT [Suspect]
     Indication: MALIGNANT URINARY TRACT NEOPLASM
     Dosage: 800MG PER DAY
     Route: 048
     Dates: start: 20130513
  2. NORCO [Concomitant]
  3. DEXAMETHASONE [Concomitant]

REACTIONS (1)
  - Death [Fatal]
